FAERS Safety Report 6480717-8 (Version None)
Quarter: 2009Q4

REPORT INFORMATION
  Report Type: 
  Country: None (occurrence: None)
  Receive Date: 20091208
  Receipt Date: 20091202
  Transmission Date: 20100525
  Serious: Yes (Hospitalization)
  Sender: FDA-Public Use
  Company Number: CL-BRISTOL-MYERS SQUIBB COMPANY-14879662

PATIENT
  Age: 62 Year
  Sex: Female
  Weight: 92 kg

DRUGS (2)
  1. AMIKACIN SULFATE [Suspect]
     Indication: URINARY TRACT INFECTION
     Dosage: TDD3500MG
     Route: 030
     Dates: start: 20060916, end: 20060922
  2. SUNITINIB MALATE [Concomitant]
     Indication: METASTATIC RENAL CELL CARCINOMA
     Dosage: START DATE OF CYCLE 3:22AUG06.
     Route: 048
     Dates: start: 20060518, end: 20060918

REACTIONS (1)
  - ENTEROCOLITIS [None]
